FAERS Safety Report 6820011-6 (Version None)
Quarter: 2010Q3

REPORT INFORMATION
  Report Type: 
  Country: None (occurrence: None)
  Receive Date: 20100707
  Receipt Date: 20100629
  Transmission Date: 20110219
  Serious: Yes (Hospitalization)
  Sender: FDA-Public Use
  Company Number: JP-ELI_LILLY_AND_COMPANY-JP201006007369

PATIENT
  Age: 64 Year
  Sex: Male

DRUGS (1)
  1. GEMZAR [Suspect]
     Indication: PANCREATIC CARCINOMA STAGE IV
     Dosage: 1000 MG/M2, UNK
     Route: 042
     Dates: start: 20100414, end: 20100421

REACTIONS (5)
  - GRANULOMA [None]
  - HAEMATOMA [None]
  - PANCREATIC ENLARGEMENT [None]
  - VASCULAR PSEUDOANEURYSM [None]
  - VASCULAR PSEUDOANEURYSM RUPTURED [None]
